FAERS Safety Report 10644556 (Version 1)
Quarter: 2014Q4

REPORT INFORMATION
  Report Type: Spontaneous
  Country: GB (occurrence: GB)
  Receive Date: 20141210
  Receipt Date: 20141210
  Transmission Date: 20150529
  Serious: Yes (Hospitalization, Other)
  Sender: FDA-Public Use
  Company Number: GB-TEVA-526083ISR

PATIENT
  Age: 28 Year
  Sex: Male
  Weight: 104.1 kg

DRUGS (6)
  1. IBUPROFEN. [Concomitant]
     Active Substance: IBUPROFEN
  2. OLANZAPINE. [Suspect]
     Active Substance: OLANZAPINE
     Indication: SCHIZOPHRENIA, PARANOID TYPE
     Route: 030
     Dates: start: 20141111, end: 20141111
  3. COLECALCIFEROL [Concomitant]
     Active Substance: CHOLECALCIFEROL
  4. LORAZEPAM. [Concomitant]
     Active Substance: LORAZEPAM
     Dosage: ORAL OR INTRAMUSCULAR
  5. BIOXTRA [Concomitant]
  6. PROCYCLIDINE [Concomitant]
     Active Substance: PROCYCLIDINE
     Dosage: ORAL OR INTRAMUSCULAR

REACTIONS (7)
  - Post-injection delirium sedation syndrome [Recovered/Resolved]
  - Gait disturbance [Recovered/Resolved]
  - Dysarthria [Recovered/Resolved]
  - Confusional state [Recovered/Resolved]
  - Dizziness [Not Recovered/Not Resolved]
  - Disorientation [Recovered/Resolved]
  - Fall [Recovered/Resolved]

NARRATIVE: CASE EVENT DATE: 20141111
